FAERS Safety Report 13733688 (Version 1)
Quarter: 2017Q3

REPORT INFORMATION
  Report Type: Report from Study
  Country: US (occurrence: US)
  Receive Date: 20170707
  Receipt Date: 20170707
  Transmission Date: 20171127
  Serious: Yes (Other)
  Sender: FDA-Public Use
  Company Number: US-UCBSA-2017026407

PATIENT
  Age: 45 Year
  Sex: Male

DRUGS (2)
  1. CERTOLIZUMAB PEGOL [Suspect]
     Active Substance: CERTOLIZUMAB PEGOL
     Dosage: TOOK HALF DOSE
     Route: 058
     Dates: start: 20170627, end: 20170627
  2. CERTOLIZUMAB PEGOL [Suspect]
     Active Substance: CERTOLIZUMAB PEGOL
     Indication: PSORIATIC ARTHROPATHY
     Dosage: 400 MG, EV 2 WEEKS(QOW) (WEEK 0, 2 AND 4)
     Route: 058
     Dates: start: 20170613, end: 20170627

REACTIONS (8)
  - Urticaria [Recovered/Resolved]
  - Intentional product misuse [Unknown]
  - Mouth swelling [Recovered/Resolved]
  - Lip swelling [Recovered/Resolved]
  - Tremor [Recovered/Resolved]
  - Swelling face [Unknown]
  - Chills [Recovered/Resolved]
  - Serum sickness [Unknown]

NARRATIVE: CASE EVENT DATE: 201706
